FAERS Safety Report 10624709 (Version 2)
Quarter: 2015Q1

REPORT INFORMATION
  Report Type: Report from Study
  Country: DE (occurrence: DE)
  Receive Date: 20141204
  Receipt Date: 20150116
  Transmission Date: 20150720
  Serious: Yes (Death)
  Sender: FDA-Public Use
  Company Number: DE-ROCHE-1497225

PATIENT
  Age: 61 Year
  Sex: Female
  Weight: 83 kg

DRUGS (7)
  1. PAROXETINE [Concomitant]
     Active Substance: PAROXETINE\PAROXETINE HYDROCHLORIDE
     Indication: DEPRESSION
     Dosage: DOSE: 1-0-0
     Route: 048
  2. MIRTAZAPINE. [Concomitant]
     Active Substance: MIRTAZAPINE
     Indication: DEPRESSION
     Dosage: DOSE: 1-0-1/2
     Route: 048
  3. BEVACIZUMAB [Suspect]
     Active Substance: BEVACIZUMAB
     Indication: OVARIAN CANCER
     Dosage: DATE OF MOST RECENT DOSE PRIOR TO ONSET OF EVENT: 06/NOV/2014?DAY 1 (22 DAYS CYCLE)
     Route: 042
     Dates: start: 20141016
  4. SPIRONOLACTON [Concomitant]
     Active Substance: SPIRONOLACTONE
     Indication: HYPERTENSION
     Dosage: DOSE: 1-0-0
     Route: 048
     Dates: start: 20101103
  5. PANTOPRAZOLE [Concomitant]
     Active Substance: PANTOPRAZOLE SODIUM
     Indication: PROPHYLAXIS
     Dosage: 1-0-0
     Route: 048
     Dates: start: 201212
  6. GEMCITABINE [Suspect]
     Active Substance: GEMCITABINE\GEMCITABINE HYDROCHLORIDE
     Indication: OVARIAN CANCER
     Dosage: DATE OF MOST RECENT DOSE PRIOR TO ONSET OF EVENT: 13/NOV/2014?DAY 1 AND 8 (22 DAYS CYCLE)
     Route: 042
     Dates: start: 20141016
  7. CARBOPLATIN. [Suspect]
     Active Substance: CARBOPLATIN
     Indication: OVARIAN CANCER
     Dosage: 3 AWC?DATE OF MOST RECENT DOSE PRIOR TO ONSET OF EVENT: 06/NOV/2014?DAY 1 (22 DAYS CYCLE)
     Route: 042
     Dates: start: 20141016

REACTIONS (2)
  - Acute kidney injury [Fatal]
  - Metabolic acidosis [Fatal]

NARRATIVE: CASE EVENT DATE: 20141121
